FAERS Safety Report 5114974-7 (Version None)
Quarter: 2006Q3

REPORT INFORMATION
  Report Type: 
  Country: None (occurrence: None)
  Receive Date: 20060922
  Receipt Date: 20060914
  Transmission Date: 20061208
  Serious: Yes (Hospitalization)
  Sender: FDA-Public Use
  Company Number: 2006BH013380

PATIENT
  Age: 64 Year
  Sex: Female

DRUGS (2)
  1. EXTRANEAL [Suspect]
     Indication: RENAL FAILURE CHRONIC
     Dosage: 2 L; AT BEDTIME;IP
     Route: 033
     Dates: start: 20060809, end: 20060816
  2. EXTRANEAL [Suspect]
     Indication: RENAL FAILURE CHRONIC
     Dosage: 2 L; AT BEDTIME;IP
     Route: 033
     Dates: start: 20060818, end: 20060825

REACTIONS (6)
  - CULTURE POSITIVE [None]
  - FUNGUS CULTURE POSITIVE [None]
  - HAEMODIALYSIS [None]
  - PERITONITIS [None]
  - PNEUMONIA KLEBSIELLA [None]
  - RASH ERYTHEMATOUS [None]
